FAERS Safety Report 8198337-6 (Version None)
Quarter: 2012Q1

REPORT INFORMATION
  Report Type: 
  Country: None (occurrence: None)
  Receive Date: 20120309
  Receipt Date: 20120305
  Transmission Date: 20120608
  Serious: Yes (Life-Threatening, Hospitalization)
  Sender: FDA-Public Use
  Company Number: DE-B.I. PHARMACEUTICALS,INC./RIDGEFIELD-2012-DE-00477DE

PATIENT
  Sex: Male
  Weight: 90 kg

DRUGS (6)
  1. PRADAXA [Suspect]
     Indication: TACHYARRHYTHMIA
     Dosage: 2 ANZ
  2. TRIARESE [Concomitant]
     Indication: HYPERTENSION
     Dosage: 0.5 ANZ
     Route: 048
  3. NITREPRESS [Concomitant]
     Indication: HYPERTENSION
     Dosage: 2 ANZ
     Route: 048
  4. METOPROLOL SUCCINATE [Concomitant]
     Indication: HYPERTENSION
     Dosage: 2 ANZ
     Route: 048
  5. ARCOXIA [Concomitant]
     Indication: OSTEOARTHRITIS
     Dosage: 1 ANZ
     Route: 048
  6. BEZAFIBRAT [Concomitant]
     Dosage: 1 ANZ
     Route: 048

REACTIONS (2)
  - GASTRIC ULCER PERFORATION [None]
  - GASTROINTESTINAL HAEMORRHAGE [None]
